FAERS Safety Report 23407626 (Version 2)
Quarter: 2024Q1

REPORT INFORMATION
  Report Type: Report from Study
  Country: US (occurrence: US)
  Receive Date: 20240117
  Receipt Date: 20240119
  Transmission Date: 20240410
  Serious: Yes (Hospitalization, Other)
  Sender: FDA-Public Use
  Company Number: US-BAUSCH-BL-2024-000534

PATIENT
  Age: 77 Year
  Sex: Male
  Weight: 108.96 kg

DRUGS (21)
  1. XIFAXAN [Suspect]
     Active Substance: RIFAXIMIN
     Indication: Hepatic encephalopathy
     Route: 065
     Dates: start: 2018
  2. XIFAXAN [Suspect]
     Active Substance: RIFAXIMIN
     Route: 048
     Dates: start: 20221129
  3. PEPCID [Suspect]
     Active Substance: FAMOTIDINE
     Indication: Product used for unknown indication
     Dosage: REFILLS: 3
     Route: 048
     Dates: start: 20230201
  4. TYLENOL [Concomitant]
     Active Substance: ACETAMINOPHEN
     Indication: Pain
     Dosage: AS NEEDED
     Route: 048
  5. ALBUTEROL [Concomitant]
     Active Substance: ALBUTEROL
     Indication: Wheezing
     Dosage: 108 (90 BASE) MCG/ACT?INHALE 2 PUFFS INTO LUNGS EVERY 4 HOURS, AS NEEDED
     Route: 055
     Dates: start: 20220516
  6. MIDAMOR [Concomitant]
     Active Substance: AMILORIDE HYDROCHLORIDE
     Indication: Product used for unknown indication
     Route: 048
     Dates: start: 20221205
  7. COREG [Concomitant]
     Active Substance: CARVEDILOL
     Indication: Product used for unknown indication
     Dosage: 0.5 TABLETS BY MOUTH IN THE MORNING AND 0.5 TABLETS IN EVENING. TAKE WITH MEALS
     Route: 048
     Dates: start: 20221003
  8. VITAMIN D3 [Concomitant]
     Active Substance: CHOLECALCIFEROL
     Indication: Product used for unknown indication
     Dosage: 2000 UNITS
     Route: 048
  9. BENADRYL [Concomitant]
     Active Substance: DIPHENHYDRAMINE HYDROCHLORIDE
     Indication: Pruritus
     Dosage: EVERY 6 HOURS AS NEEDED
     Route: 048
  10. TYLENOL PM, EXTRA STRENGTH [Concomitant]
     Indication: Sleep disorder
     Dosage: 25-500 MG?TAKE 1-2 TAB BY MOUTH NIGHTLY AS NEEDED
     Route: 048
  11. FIBER [Concomitant]
     Indication: Product used for unknown indication
     Dosage: FIBER ADULT GUMMIES?3 UNITS BY MOUTH AS NEEDED
     Route: 048
  12. LASIX [Concomitant]
     Active Substance: FUROSEMIDE
     Indication: Product used for unknown indication
     Route: 048
     Dates: start: 20220812
  13. CHRONULAC [Concomitant]
     Active Substance: LACTULOSE
     Indication: Product used for unknown indication
     Dosage: 10 GM/15 ML?PLEASE TAKE 45 ML IN MORNING AND 30 ML IN THE EVENING
     Route: 048
     Dates: start: 20221003
  14. LIDOCARE [Concomitant]
     Indication: Product used for unknown indication
     Dosage: PLACE 1 PATCH ONTO THE SKIN DAILY.
     Route: 062
     Dates: start: 20230408
  15. PAMELOR [Concomitant]
     Active Substance: NORTRIPTYLINE HYDROCHLORIDE
     Indication: Product used for unknown indication
     Dosage: 3 CAPSULE BY MOUTH AT NIGHT
     Route: 048
     Dates: start: 20230315
  16. MYCOSTATIN [Concomitant]
     Active Substance: NYSTATIN
     Indication: Product used for unknown indication
     Route: 061
     Dates: start: 20230407
  17. PAXIL [Concomitant]
     Active Substance: PAROXETINE HYDROCHLORIDE
     Indication: Product used for unknown indication
     Route: 048
     Dates: start: 20220606
  18. FLOMAX [Concomitant]
     Active Substance: TAMSULOSIN HYDROCHLORIDE
     Indication: Product used for unknown indication
     Dosage: DAILY AFTER MEAL
     Route: 048
     Dates: start: 20221206
  19. ARISTOCORT [TRIAMCINOLONE] [Concomitant]
     Indication: Product used for unknown indication
     Route: 061
     Dates: start: 20210413
  20. POLYETHYLENE GLYCOL\PROPYLENE GLYCOL [Concomitant]
     Active Substance: POLYETHYLENE GLYCOL\PROPYLENE GLYCOL
     Indication: Dry eye
     Dosage: 0.4-0.3% SOLUTION?TWO TIMES DAILY AS NEEDED
     Route: 047
  21. NIZORAL [Concomitant]
     Active Substance: KETOCONAZOLE
     Indication: Product used for unknown indication
     Dosage: SHAMPOO SCALP IN SHOWERS 2-3 TIMES A WEEK
     Route: 061

REACTIONS (9)
  - Acute kidney injury [Recovering/Resolving]
  - Pneumonia [Unknown]
  - Portal hypertensive gastropathy [Unknown]
  - Hypersomnia [Unknown]
  - Muscle atrophy [Unknown]
  - Amnesia [Unknown]
  - Decreased appetite [Unknown]
  - Fatigue [Unknown]
  - Therapy interrupted [Unknown]
